FAERS Safety Report 13162037 (Version 1)
Quarter: 2017Q1

REPORT INFORMATION
  Report Type: Spontaneous
  Country: US (occurrence: US)
  Receive Date: 20170130
  Receipt Date: 20170130
  Transmission Date: 20170428
  Serious: No
  Sender: FDA-Public Use
  Company Number: US-PFIZER INC-2017035834

PATIENT
  Age: 59 Year
  Sex: Female
  Weight: 68 kg

DRUGS (4)
  1. FELDENE [Concomitant]
     Active Substance: PIROXICAM
     Indication: FIBROMYALGIA
  2. FELDENE [Concomitant]
     Active Substance: PIROXICAM
     Indication: ARTHRITIS
     Dosage: 20 MG, 1X/DAY
     Route: 048
  3. LYRICA [Suspect]
     Active Substance: PREGABALIN
     Indication: ARTHRITIS
  4. LYRICA [Suspect]
     Active Substance: PREGABALIN
     Indication: FIBROMYALGIA
     Dosage: 50 MG, 1X/DAY BEFORE BED
     Route: 048
     Dates: start: 201701

REACTIONS (4)
  - Intentional product misuse [Unknown]
  - Headache [Recovered/Resolved]
  - Somnolence [Recovered/Resolved]
  - Feeling abnormal [Recovered/Resolved]

NARRATIVE: CASE EVENT DATE: 201701
